FAERS Safety Report 15616105 (Version 1)
Quarter: 2018Q4

REPORT INFORMATION
  Report Type: Spontaneous
  Country: US (occurrence: US)
  Receive Date: 20181114
  Receipt Date: 20181114
  Transmission Date: 20190205
  Serious: Yes (Hospitalization)
  Sender: FDA-Public Use
  Company Number: US-009507513-1811USA003104

PATIENT
  Sex: Female

DRUGS (1)
  1. KEYTRUDA [Suspect]
     Active Substance: PEMBROLIZUMAB
     Indication: INFLAMMATORY CARCINOMA OF THE BREAST
     Dosage: UNK

REACTIONS (3)
  - Product use in unapproved indication [Unknown]
  - Vomiting [Unknown]
  - Diarrhoea [Unknown]
